FAERS Safety Report 6730878-8 (Version None)
Quarter: 2010Q2

REPORT INFORMATION
  Report Type: 
  Country: None (occurrence: None)
  Receive Date: 20100518
  Receipt Date: 20100505
  Transmission Date: 20101027
  Serious: Yes (Hospitalization)
  Sender: FDA-Public Use
  Company Number: PHHY2010AU20709

PATIENT
  Sex: Female

DRUGS (1)
  1. CLOZARIL [Suspect]
     Dosage: 1000 MG
     Dates: start: 20020804

REACTIONS (2)
  - MENTAL DISORDER [None]
  - SUICIDAL BEHAVIOUR [None]
